FAERS Safety Report 20126274 (Version 1)
Quarter: 2021Q4

REPORT INFORMATION
  Report Type: Spontaneous
  Country: US (occurrence: None)
  Receive Date: 20211122
  Receipt Date: 20211122
  Transmission Date: 20220303
  Serious: Yes (Hospitalization)
  Sender: FDA-Public Use
  Company Number: None

PATIENT
  Age: 61 Year
  Sex: Male
  Weight: 84.8 kg

DRUGS (3)
  1. KYMRIAH [Suspect]
     Active Substance: TISAGENLECLEUCEL
  2. FLUDARABINE [Suspect]
     Active Substance: FLUDARABINE PHOSPHATE
  3. CYCLOPHOSPHAMIDE [Suspect]
     Active Substance: CYCLOPHOSPHAMIDE

REACTIONS (8)
  - Pyrexia [None]
  - Fatigue [None]
  - Nausea [None]
  - Malaise [None]
  - Oxygen saturation decreased [None]
  - Hypotension [None]
  - C-reactive protein increased [None]
  - Lymphoma [None]

NARRATIVE: CASE EVENT DATE: 20210818
